FAERS Safety Report 7043369-4 (Version None)
Quarter: 2010Q3

REPORT INFORMATION
  Report Type: 
  Country: None (occurrence: None)
  Receive Date: 20100929
  Receipt Date: 20100622
  Transmission Date: 20110219
  Serious: Yes (Other)
  Sender: FDA-Public Use
  Company Number: US-WYE-H15851910

PATIENT
  Age: 68 Year
  Sex: Female
  Weight: 62.65 kg

DRUGS (5)
  1. PRISTIQ [Suspect]
     Indication: DEPRESSION
     Dosage: 50 MG 1X PER 1 DAY, ORAL, 100 MG 1X PER 1 DAY, ORAL
     Route: 048
     Dates: start: 20100101, end: 20100419
  2. PRISTIQ [Suspect]
     Indication: DEPRESSION
     Dosage: 50 MG 1X PER 1 DAY, ORAL, 100 MG 1X PER 1 DAY, ORAL
     Route: 048
     Dates: start: 20100420, end: 20100420
  3. AMBIEN [Suspect]
     Indication: INSOMNIA
     Dates: end: 20100501
  4. IMURAN [Concomitant]
  5. KLONOPIN [Concomitant]

REACTIONS (17)
  - AMNESIA [None]
  - CONCUSSION [None]
  - CONDITION AGGRAVATED [None]
  - CONFUSIONAL STATE [None]
  - DIZZINESS [None]
  - DRUG EFFECT DECREASED [None]
  - DYSARTHRIA [None]
  - EAR PAIN [None]
  - FALL [None]
  - HEADACHE [None]
  - LACERATION [None]
  - POST CONCUSSION SYNDROME [None]
  - POST-TRAUMATIC STRESS DISORDER [None]
  - RIB FRACTURE [None]
  - ROAD TRAFFIC ACCIDENT [None]
  - TEMPOROMANDIBULAR JOINT SYNDROME [None]
  - TREMOR [None]
